FAERS Safety Report 7051757-5 (Version None)
Quarter: 2010Q4

REPORT INFORMATION
  Report Type: 
  Country: None (occurrence: None)
  Receive Date: 20101019
  Receipt Date: 20101012
  Transmission Date: 20110411
  Serious: Yes (Other)
  Sender: FDA-Public Use
  Company Number: US-TEVA-249604USA

PATIENT
  Sex: Male

DRUGS (3)
  1. CLOZAPINE [Suspect]
     Indication: SCHIZOAFFECTIVE DISORDER
     Dates: start: 19900101
  2. RISPERIDONE [Concomitant]
  3. VALPROIC ACID [Concomitant]

REACTIONS (7)
  - DYSPHAGIA [None]
  - EATING DISORDER [None]
  - ENCEPHALOPATHY [None]
  - FALL [None]
  - HYDROCEPHALUS [None]
  - HYPOTONIA [None]
  - MEMORY IMPAIRMENT [None]
